FAERS Safety Report 22350097 (Version 2)
Quarter: 2025Q2

REPORT INFORMATION
  Report Type: Spontaneous
  Country: US (occurrence: US)
  Receive Date: 20230522
  Receipt Date: 20250529
  Transmission Date: 20250717
  Serious: No
  Sender: SANOFI AVENTIS
  Company Number: US-SA-SAC20230518000998

PATIENT
  Age: 62 Year
  Sex: Male
  Weight: 84.36 kg

DRUGS (2)
  1. DUPIXENT [Suspect]
     Active Substance: DUPILUMAB
     Indication: Illness
     Dosage: 300 MG, QOW
     Route: 058
  2. NUCALA [Suspect]
     Active Substance: MEPOLIZUMAB
     Indication: Product used for unknown indication
     Route: 065

REACTIONS (4)
  - Influenza [Unknown]
  - Irregular breathing [Unknown]
  - Somnolence [Unknown]
  - Sinusitis [Unknown]

NARRATIVE: CASE EVENT DATE: 20230501
